FAERS Safety Report 12212007 (Version 5)
Quarter: 2016Q3

REPORT INFORMATION
  Report Type: Report from Study
  Country: BR (occurrence: BR)
  Receive Date: 20160325
  Receipt Date: 20160711
  Transmission Date: 20161109
  Serious: Yes (Other)
  Sender: FDA-Public Use
  Company Number: PHHY2015BR118326

PATIENT
  Sex: Female
  Weight: 59 kg

DRUGS (4)
  1. AFINITOR [Suspect]
     Active Substance: EVEROLIMUS
     Indication: BREAST CANCER METASTATIC
     Dosage: 1 DF OF 5 MG, QD
     Route: 048
     Dates: start: 20150813
  2. ZOMETA [Concomitant]
     Active Substance: ZOLEDRONIC ACID
     Indication: BONE DISORDER
     Dosage: 1 DF, Q3MO
     Route: 048
     Dates: start: 2015
  3. AROMASIN [Concomitant]
     Active Substance: EXEMESTANE
     Indication: BREAST CANCER
     Dosage: 1 DF, QD
     Route: 048
     Dates: start: 20150818
  4. VITAMIN D [Concomitant]
     Active Substance: CHOLECALCIFEROL
     Indication: BONE DISORDER
     Dosage: 8 DF, QD
     Route: 048

REACTIONS (31)
  - Peripheral swelling [Recovering/Resolving]
  - Nasal injury [Not Recovered/Not Resolved]
  - Saliva altered [Not Recovered/Not Resolved]
  - Dysgeusia [Unknown]
  - Alopecia [Unknown]
  - Abdominal pain [Not Recovered/Not Resolved]
  - Blister [Recovering/Resolving]
  - Nasal disorder [Unknown]
  - Influenza [Recovering/Resolving]
  - Pruritus [Unknown]
  - Mass [Recovering/Resolving]
  - Acne [Recovering/Resolving]
  - Skin exfoliation [Recovering/Resolving]
  - Cough [Recovered/Resolved]
  - Skin atrophy [Recovering/Resolving]
  - Weight increased [Recovering/Resolving]
  - Epistaxis [Recovering/Resolving]
  - Pyrexia [Not Recovered/Not Resolved]
  - Blood cholesterol increased [Not Recovered/Not Resolved]
  - Drug ineffective [Unknown]
  - Pain in extremity [Recovering/Resolving]
  - Arthralgia [Recovering/Resolving]
  - Aphthous ulcer [Recovering/Resolving]
  - Limb injury [Recovering/Resolving]
  - Nasal discomfort [Unknown]
  - Malaise [Recovering/Resolving]
  - Decreased immune responsiveness [Recovering/Resolving]
  - Oropharyngeal discomfort [Unknown]
  - Bone pain [Unknown]
  - Stomatitis [Unknown]
  - Weight decreased [Recovering/Resolving]

NARRATIVE: CASE EVENT DATE: 2015
